FAERS Safety Report 17225164 (Version 1)
Quarter: 2020Q1

REPORT INFORMATION
  Report Type: Spontaneous
  Country: US (occurrence: US)
  Receive Date: 20200101
  Receipt Date: 20200101
  Transmission Date: 20200409
  Serious: Yes (Death)
  Sender: FDA-Public Use
  Company Number: None

PATIENT
  Age: 73 Year
  Sex: Male
  Weight: 63 kg

DRUGS (18)
  1. LEVOFLOXACIN, GENERIC FOR LEVAQUIN [Suspect]
     Active Substance: LEVOFLOXACIN
     Indication: PNEUMONIA
     Dosage: ?          QUANTITY:1 CAPSULE(S);?
     Route: 048
     Dates: start: 20190401, end: 20190404
  2. MEXILETINE [Concomitant]
     Active Substance: MEXILETINE
  3. CELLCEPT [Concomitant]
     Active Substance: MYCOPHENOLATE MOFETIL\MYCOPHENOLATE MOFETIL HYDROCHLORIDE
  4. TRELOGY [Concomitant]
  5. KCL [Concomitant]
     Active Substance: POTASSIUM CHLORIDE
  6. ALDACTONE [Concomitant]
     Active Substance: SPIRONOLACTONE
  7. FLOMAX [Concomitant]
     Active Substance: TAMSULOSIN HYDROCHLORIDE
  8. PROTONIX [Concomitant]
     Active Substance: PANTOPRAZOLE SODIUM
  9. PROAIR HFA [Concomitant]
     Active Substance: ALBUTEROL SULFATE
  10. LEXAPRO [Concomitant]
     Active Substance: ESCITALOPRAM OXALATE
  11. SOTALOL. [Concomitant]
     Active Substance: SOTALOL
  12. ATIVAN [Concomitant]
     Active Substance: LORAZEPAM
  13. PREDNISONE. [Concomitant]
     Active Substance: PREDNISONE
  14. ZEBETA [Concomitant]
     Active Substance: BISOPROLOL FUMARATE
  15. SINGULAIR [Concomitant]
     Active Substance: MONTELUKAST SODIUM
  16. DALIRESP [Concomitant]
     Active Substance: ROFLUMILAST
  17. CRESTOR [Concomitant]
     Active Substance: ROSUVASTATIN CALCIUM
  18. LASIX [Concomitant]
     Active Substance: FUROSEMIDE

REACTIONS (17)
  - Diplopia [None]
  - Seizure [None]
  - Feeling hot [None]
  - Confusional state [None]
  - Mitochondrial cytopathy [None]
  - Hallucination, visual [None]
  - Hallucination [None]
  - Haemorrhage subcutaneous [None]
  - Weight decreased [None]
  - Rash vesicular [None]
  - Tendon rupture [None]
  - Insomnia [None]
  - Headache [None]
  - Vision blurred [None]
  - Eye movement disorder [None]
  - Feeding disorder [None]
  - Psychotic behaviour [None]

NARRATIVE: CASE EVENT DATE: 20190530
